FAERS Safety Report 5449266-X (Version None)
Quarter: 2007Q3

REPORT INFORMATION
  Report Type: 
  Country: None (occurrence: None)
  Receive Date: 20070907
  Receipt Date: 20070823
  Transmission Date: 20080115
  Serious: Yes (Congenital Anomaly)
  Sender: FDA-Public Use
  Company Number: 8026330

PATIENT
  Sex: Male
  Weight: 3.4 kg

DRUGS (3)
  1. KEPPRA [Suspect]
     Dosage: 2000 MG /D TRP
     Route: 064
     Dates: start: 20020331
  2. LAMOTRIGINE [Suspect]
     Dosage: 150 MG /D
     Dates: start: 19891118
  3. VALPROIC ACID [Suspect]
     Dosage: 1300 MG /D
     Dates: start: 19920101

REACTIONS (2)
  - DRUG EXPOSURE DURING PREGNANCY [None]
  - HYPOSPADIAS [None]
